FAERS Safety Report 9778193 (Version 3)
Quarter: 2014Q1

REPORT INFORMATION
  Report Type: Report from Study
  Country: JP (occurrence: JP)
  Receive Date: 20131223
  Receipt Date: 20140103
  Transmission Date: 20141002
  Serious: Yes (Other)
  Sender: FDA-Public Use
  Company Number: JP-JNJFOC-20131104394

PATIENT
  Age: 87 Year
  Sex: Female
  Weight: 39 kg

DRUGS (5)
  1. XARELTO [Suspect]
     Indication: ATRIAL FIBRILLATION
     Route: 048
     Dates: start: 20130605, end: 20130620
  2. XARELTO [Suspect]
     Indication: THROMBOSIS PROPHYLAXIS
     Route: 048
     Dates: start: 20130605, end: 20130620
  3. XARELTO [Suspect]
     Indication: CEREBROVASCULAR ACCIDENT PROPHYLAXIS
     Route: 048
     Dates: start: 20130605, end: 20130620
  4. LIVALO [Concomitant]
     Route: 048
  5. LANSOPRAZOLE [Concomitant]
     Route: 048

REACTIONS (2)
  - Large intestinal ulcer haemorrhage [Recovered/Resolved]
  - Melaena [Recovered/Resolved]
